FAERS Safety Report 5142492-9 (Version None)
Quarter: 2006Q4

REPORT INFORMATION
  Report Type: 
  Country: None (occurrence: None)
  Receive Date: 20061102
  Receipt Date: 20060721
  Transmission Date: 20070319
  Serious: Yes (Hospitalization)
  Sender: FDA-Public Use
  Company Number: PL-SANOFI-SYNTHELABO-F01200601735

PATIENT
  Sex: Male
  Weight: 73 kg

DRUGS (5)
  1. ACE INHIBITORS [Concomitant]
  2. PENTOXYPHILLIN [Concomitant]
  3. PLACEBO [Suspect]
     Indication: PERIPHERAL ISCHAEMIA
  4. CLOPIDOGREL [Suspect]
     Indication: PERIPHERAL ISCHAEMIA
     Route: 048
     Dates: start: 20050712, end: 20060409
  5. ASPIRIN [Concomitant]
     Indication: PERIPHERAL ISCHAEMIA
     Dosage: (75-100) MG
     Route: 048
     Dates: start: 20050712

REACTIONS (1)
  - BLADDER NEOPLASM [None]
